FAERS Safety Report 14313639 (Version 2)
Quarter: 2018Q1

REPORT INFORMATION
  Report Type: Spontaneous
  Country: DE (occurrence: DE)
  Receive Date: 20171221
  Receipt Date: 20180228
  Transmission Date: 20180509
  Serious: Yes (Hospitalization)
  Sender: FDA-Public Use
  Company Number: DE-CIPLA LTD.-2017DE23824

PATIENT

DRUGS (13)
  1. QUETIAPINE. [Suspect]
     Active Substance: QUETIAPINE
     Dosage: 200 MG, DOSAGE FORM: UNSPECIFIED
     Route: 048
     Dates: start: 20161107
  2. RISPERIDONE. [Suspect]
     Active Substance: RISPERIDONE
     Dosage: 2 MG, DOSAGE FORM: UNSPECIFIED
     Route: 048
     Dates: start: 20161119, end: 20161120
  3. ZOPICLON [Concomitant]
     Active Substance: ZOPICLONE
     Indication: PRODUCT USED FOR UNKNOWN INDICATION
     Dosage: 7.5 MG, DOSAGE FORM: UNSPECIFIED, SINCE LONG TIME
     Route: 048
  4. ENALAPRIL [Concomitant]
     Active Substance: ENALAPRIL
     Indication: PRODUCT USED FOR UNKNOWN INDICATION
     Dosage: 10 MG, DOSAGE FORM: UNSPECIFIED, SINCE LONG TIME
     Route: 048
  5. RISPERIDONE. [Suspect]
     Active Substance: RISPERIDONE
     Dosage: 3 MG, DOSAGE FORM: UNSPECIFIED
     Route: 048
     Dates: start: 20161118, end: 20161119
  6. QUETIAPINE. [Suspect]
     Active Substance: QUETIAPINE
     Indication: PRODUCT USED FOR UNKNOWN INDICATION
     Dosage: 300 MG, DOSAGE FORM: UNSPECIFIED
     Route: 048
     Dates: start: 20161005, end: 20161106
  7. RISPERIDONE. [Suspect]
     Active Substance: RISPERIDONE
     Dosage: 1 MG, DOSAGE FORM: UNSPECIFIED
     Route: 048
     Dates: start: 20161121, end: 20161121
  8. REBOXETINE [Concomitant]
     Active Substance: REBOXETINE
     Indication: PRODUCT USED FOR UNKNOWN INDICATION
     Dosage: 4 MG, DOSAGE FORM: UNSPECIFIED, SINCE LONG TIME
     Route: 048
  9. RISPERIDONE. [Suspect]
     Active Substance: RISPERIDONE
     Dosage: 4 MG, DOSAGE FORM: UNSPECIFIED
     Route: 048
     Dates: start: 20161101, end: 20161117
  10. QUILONIUM R [Concomitant]
     Active Substance: LITHIUM CARBONATE
     Indication: PRODUCT USED FOR UNKNOWN INDICATION
     Dosage: 225 MG, DOSAGE FORM: UNSPECIFIED, SINCE LONG TIME
     Route: 048
  11. SIMVASTATIN. [Concomitant]
     Active Substance: SIMVASTATIN
     Indication: PRODUCT USED FOR UNKNOWN INDICATION
     Dosage: 20 MG, DOSAGE FORM: UNSPECIFIED, SINCE LONG TIME
     Route: 048
  12. PANTOPRAZOLE [Concomitant]
     Active Substance: PANTOPRAZOLE
     Indication: PRODUCT USED FOR UNKNOWN INDICATION
     Dosage: 20 MG, DOSAGE FORM: UNSPECIFIED, SINCE LONG TIME
     Route: 048
  13. RISPERIDONE. [Suspect]
     Active Substance: RISPERIDONE
     Indication: PRODUCT USED FOR UNKNOWN INDICATION
     Dosage: 1.5 MG, DOSAGE FORM: UNSPECIFIED
     Route: 048
     Dates: start: 20161031, end: 20161101

REACTIONS (1)
  - Venous thrombosis [Recovered/Resolved]

NARRATIVE: CASE EVENT DATE: 20161101
